FAERS Safety Report 11195619 (Version 15)
Quarter: 2023Q2

REPORT INFORMATION
  Report Type: Spontaneous
  Country: US (occurrence: US)
  Receive Date: 20150617
  Receipt Date: 20230630
  Transmission Date: 20230721
  Serious: Yes (Other)
  Sender: FDA-Public Use
  Company Number: US-PFIZER INC-2015200275

PATIENT
  Age: 28 Year
  Sex: Female
  Weight: 77 kg

DRUGS (7)
  1. PREMARIN [Suspect]
     Active Substance: ESTROGENS, CONJUGATED
     Indication: Hormone replacement therapy
     Dosage: 0.625 MG, 1X/DAY
     Route: 048
     Dates: start: 1977
  2. PREMARIN [Suspect]
     Active Substance: ESTROGENS, CONJUGATED
     Indication: Hysterectomy
     Dosage: EVERY EVENING
     Route: 048
  3. PREMARIN [Suspect]
     Active Substance: ESTROGENS, CONJUGATED
     Indication: Artificial menopause
  4. PREMARIN [Suspect]
     Active Substance: ESTROGENS, CONJUGATED
     Indication: Hormone replacement therapy
  5. LOSARTAN [Concomitant]
     Active Substance: LOSARTAN
     Indication: Blood pressure abnormal
     Dosage: 100 MG, 1X/DAY
  6. HYDROCHLOROTHIAZIDE [Concomitant]
     Active Substance: HYDROCHLOROTHIAZIDE
     Dosage: UNK
  7. GABAPENTIN [Concomitant]
     Active Substance: GABAPENTIN
     Indication: Fibromyalgia
     Dosage: 600 MG, 3X/DAY (1800MG A DAY)
     Dates: end: 2015

REACTIONS (25)
  - Hepatic cancer [Recovering/Resolving]
  - Blindness unilateral [Not Recovered/Not Resolved]
  - Back disorder [Unknown]
  - Cataract [Not Recovered/Not Resolved]
  - Lyme disease [Not Recovered/Not Resolved]
  - Colon cancer [Unknown]
  - Pneumothorax [Unknown]
  - Hypoacusis [Unknown]
  - Mood swings [Not Recovered/Not Resolved]
  - Anxiety [Unknown]
  - Mental disorder [Unknown]
  - Pain [Unknown]
  - Irritability [Not Recovered/Not Resolved]
  - Hair growth abnormal [Not Recovered/Not Resolved]
  - Decreased appetite [Unknown]
  - Underweight [Unknown]
  - Anaemia [Unknown]
  - Stress [Unknown]
  - Anger [Unknown]
  - Osteoporosis [Not Recovered/Not Resolved]
  - Personality disorder [Unknown]
  - Memory impairment [Unknown]
  - Frustration tolerance decreased [Unknown]
  - Feeling abnormal [Unknown]
  - Breast fibroma [Unknown]

NARRATIVE: CASE EVENT DATE: 19790101
